FAERS Safety Report 11721428 (Version 2)
Quarter: 2015Q4

REPORT INFORMATION
  Report Type: Report from Study
  Country: US (occurrence: US)
  Receive Date: 20151111
  Receipt Date: 20151118
  Transmission Date: 20160304
  Serious: Yes (Other)
  Sender: FDA-Public Use
  Company Number: US-ABBVIE-15K-163-1497469-00

PATIENT
  Age: 41 Year
  Sex: Female

DRUGS (4)
  1. HUMIRA [Suspect]
     Active Substance: ADALIMUMAB
     Indication: RHEUMATOID ARTHRITIS
     Dosage: PATIENT HAD TWO DOSES ONLY
     Route: 058
     Dates: start: 201505, end: 201505
  2. SULFASALAZINE. [Concomitant]
     Active Substance: SULFASALAZINE
     Indication: PRODUCT USED FOR UNKNOWN INDICATION
  3. AXERT [Concomitant]
     Active Substance: ALMOTRIPTAN MALATE
     Indication: MIGRAINE
  4. ACTEMRA [Suspect]
     Active Substance: TOCILIZUMAB
     Indication: RHEUMATOID ARTHRITIS
     Route: 065
     Dates: start: 201506, end: 201508

REACTIONS (11)
  - Swelling face [Recovered/Resolved]
  - Hepatic steatosis [Not Recovered/Not Resolved]
  - Oral mucosal eruption [Recovered/Resolved]
  - Swollen tongue [Recovered/Resolved]
  - Lip swelling [Recovered/Resolved]
  - Drug hypersensitivity [Not Recovered/Not Resolved]
  - Gilbert^s syndrome [Not Recovered/Not Resolved]
  - Eye swelling [Recovered/Resolved]
  - Rash [Recovered/Resolved]
  - Lupus-like syndrome [Recovered/Resolved]
  - Hepatic enzyme increased [Recovered/Resolved]

NARRATIVE: CASE EVENT DATE: 201505
